FAERS Safety Report 9159384 (Version 1)
Quarter: 2013Q1

REPORT INFORMATION
  Report Type: Spontaneous
  Country: US (occurrence: None)
  Receive Date: 20130213
  Receipt Date: 20130213
  Transmission Date: 20140127
  Serious: Yes (Hospitalization)
  Sender: FDA-Public Use
  Company Number: 2012-423

PATIENT
  Age: 59 Year
  Sex: Female
  Weight: 76.9 kg

DRUGS (10)
  1. PRAIT (ZICONOTIDE) INTRATHECAL INFUSION [Suspect]
     Indication: PAIN
     Dosage: TRIAL DOSE
     Route: 037
     Dates: start: 20111222, end: 20111222
  2. PRAIT (ZICONOTIDE) INTRATHECAL INFUSION [Suspect]
     Indication: PAIN
     Dosage: TRIAL DOSE
     Route: 037
     Dates: start: 20111222, end: 20111222
  3. PRAIT (ZICONOTIDE) INTRATHECAL INFUSION [Suspect]
     Indication: SPINAL FUSION SURGERY
     Dosage: TRIAL DOSE
     Route: 037
     Dates: start: 20111222, end: 20111222
  4. CELEXA (CITALOPRAM HYDROBROMIDE) [Concomitant]
     Dosage: TRIAL DOSE
  5. NEXIUM (ESOMEPRAZOLE SODIUM) [Concomitant]
  6. KLONOPIN (CLONAZEPAM) (TABLETS) [Concomitant]
  7. NEURONTIN (GABAPENTIN) [Concomitant]
  8. TRAMADOL (TRAMADOL HYDROCHLORIDE) [Concomitant]
  9. HYDROCODONE (HYDROCODONE BITARTRATE) [Concomitant]
  10. ZYRTEC (CETIRIZINE HYDROCHLORIDE) [Concomitant]

REACTIONS (9)
  - Verbigeration [None]
  - Hallucination, auditory [None]
  - Rash macular [None]
  - Poor quality sleep [None]
  - Drug ineffective [None]
  - Dysarthria [None]
  - Burning sensation [None]
  - Inadequate analgesia [None]
  - Toxicity to various agents [None]
